FAERS Safety Report 7617743-9 (Version None)
Quarter: 2011Q3

REPORT INFORMATION
  Report Type: 
  Country: None (occurrence: None)
  Receive Date: 20110718
  Receipt Date: 20110708
  Transmission Date: 20111222
  Serious: Yes (Hospitalization)
  Sender: FDA-Public Use
  Company Number: FR-JNJFOC-20110704505

PATIENT
  Age: 73 Year
  Sex: Male

DRUGS (7)
  1. IRBESARTAN + HYDROCHLOROTHIAZIDE [Concomitant]
     Route: 065
  2. UMULINE [Concomitant]
     Route: 065
  3. GALANTAMINE HYDROBROMIDE [Suspect]
     Indication: PRODUCT USED FOR UNKNOWN INDICATION
     Route: 048
     Dates: start: 20100201, end: 20100605
  4. RISPERDAL [Suspect]
     Indication: PRODUCT USED FOR UNKNOWN INDICATION
     Route: 048
     Dates: start: 20100201, end: 20100605
  5. HUMALOG [Concomitant]
     Route: 065
  6. AMLODIPINE BESYLATE [Concomitant]
     Route: 065
  7. ASPIRIN [Concomitant]
     Route: 065

REACTIONS (1)
  - NEUROLEPTIC MALIGNANT SYNDROME [None]
